FAERS Safety Report 5683055-6 (Version None)
Quarter: 2008Q1

REPORT INFORMATION
  Report Type: 
  Country: None (occurrence: None)
  Receive Date: 20080327
  Receipt Date: 20080319
  Transmission Date: 20080703
  Serious: Yes (Other)
  Sender: FDA-Public Use
  Company Number: PHBS2007PT14701

PATIENT
  Age: 66 Year
  Sex: Male

DRUGS (7)
  1. CYCLOPHOSPHAMIDE [Concomitant]
     Indication: MULTIPLE MYELOMA
     Dosage: 1 MG, D
     Route: 042
  2. CYCLOPHOSPHAMIDE [Concomitant]
     Dosage: UNK, QMO
     Route: 042
  3. ERITROPOETIN [Concomitant]
     Indication: MULTIPLE MYELOMA
     Dosage: 30000 U,D
     Route: 058
  4. DEXAMETHASONE [Concomitant]
     Indication: MULTIPLE MYELOMA
     Dosage: 40 MG/FOR 4 DAYS EVERY MONTH
     Route: 048
  5. FILGRASTIM [Concomitant]
     Dosage: 30000000 U, QMO
     Route: 058
  6. THALIDOMIDE [Concomitant]
     Dosage: 100 MG, QD
     Route: 048
  7. ZOLEDRONIC ACID [Suspect]
     Indication: MULTIPLE MYELOMA
     Dosage: 4 MG, QMO
     Route: 042

REACTIONS (11)
  - ABSCESS [None]
  - BACTERIAL INFECTION [None]
  - BONE DEBRIDEMENT [None]
  - BONE DISORDER [None]
  - EXCESSIVE GRANULATION TISSUE [None]
  - IMPAIRED HEALING [None]
  - MASTICATION DISORDER [None]
  - OSTEOMYELITIS [None]
  - OSTEONECROSIS [None]
  - PAIN IN JAW [None]
  - TOOTH EXTRACTION [None]
